FAERS Safety Report 6774348-X (Version None)
Quarter: 2010Q2

REPORT INFORMATION
  Report Type: 
  Country: None (occurrence: None)
  Receive Date: 20100617
  Receipt Date: 20100607
  Transmission Date: 20101027
  Serious: Yes (Hospitalization)
  Sender: FDA-Public Use
  Company Number: DE-JNJFOC-20100604446

PATIENT
  Sex: Male
  Weight: 74.3 kg

DRUGS (8)
  1. LOPERAMIDE [Suspect]
     Route: 065
  2. LOPERAMIDE [Suspect]
     Indication: DIARRHOEA
     Route: 065
  3. IRINOTECAN HYDROCHLORIDE [Suspect]
     Indication: COLORECTAL CANCER
     Route: 042
  4. BEVACIZUMAB [Suspect]
     Indication: COLORECTAL CANCER
     Route: 042
  5. CAPECITABINE [Suspect]
     Indication: COLORECTAL CANCER
     Dosage: DAYS 1-15
     Route: 048
  6. HYDROCHLOROTHIAZIDE/RAMIPRIL [Concomitant]
  7. CLEXANE [Concomitant]
  8. TOREM [Concomitant]

REACTIONS (1)
  - ILEUS [None]
